FAERS Safety Report 6727257-6 (Version None)
Quarter: 2010Q2

REPORT INFORMATION
  Report Type: 
  Country: None (occurrence: None)
  Receive Date: 20100517
  Receipt Date: 20100506
  Transmission Date: 20101027
  Serious: Yes (Hospitalization)
  Sender: FDA-Public Use
  Company Number: FR-JNJFOC-20100501900

PATIENT
  Age: 60 Year
  Sex: Female

DRUGS (14)
  1. DORIBAX [Suspect]
     Indication: SEPSIS
     Route: 041
     Dates: start: 20100311, end: 20100313
  2. KEPPRA [Suspect]
     Indication: EPILEPSY
     Route: 042
     Dates: start: 20100311, end: 20100313
  3. CIPROFLOXACIN HCL [Suspect]
     Indication: SEPSIS
     Route: 048
     Dates: start: 20100302, end: 20100313
  4. ZYVOXID [Suspect]
     Indication: SEPSIS
     Dates: start: 20100306, end: 20100313
  5. RIVOTRIL [Concomitant]
     Indication: EPILEPSY
     Route: 042
     Dates: start: 20100311, end: 20100311
  6. BACTRIM [Concomitant]
     Indication: SEPSIS
     Route: 042
     Dates: start: 20100303, end: 20100316
  7. CELLCEPT [Concomitant]
     Indication: DRUG USE FOR UNKNOWN INDICATION
  8. CORTANCYL [Concomitant]
     Indication: DRUG USE FOR UNKNOWN INDICATION
  9. LASIX [Concomitant]
     Indication: DRUG USE FOR UNKNOWN INDICATION
  10. NEXIUM [Concomitant]
     Indication: DRUG USE FOR UNKNOWN INDICATION
  11. CACIT VITAMINE D3 [Concomitant]
     Indication: DRUG USE FOR UNKNOWN INDICATION
  12. COLCHIMAX [Concomitant]
     Indication: DRUG USE FOR UNKNOWN INDICATION
  13. DIFFU K [Concomitant]
  14. IMIPENEM AND CILASTATIN SODIUM [Concomitant]
     Indication: SEPSIS

REACTIONS (5)
  - CONFUSIONAL STATE [None]
  - COUGH [None]
  - DYSARTHRIA [None]
  - HALLUCINATION [None]
  - RASH [None]
